FAERS Safety Report 21259247 (Version 1)
Quarter: 2022Q3

REPORT INFORMATION
  Report Type: Spontaneous
  Country: US (occurrence: None)
  Receive Date: 20220825
  Receipt Date: 20220825
  Transmission Date: 20221027
  Serious: No
  Sender: FDA-Public Use
  Company Number: None

PATIENT
  Age: 59 Year
  Sex: Female
  Weight: 67.49 kg

DRUGS (15)
  1. CAPECITABINE [Suspect]
     Active Substance: CAPECITABINE
     Indication: Hepatobiliary cancer
     Dosage: FREQUENCY : TWICE A DAY;?
     Route: 048
  2. CARAFATE [Concomitant]
  3. CYCLOBENZPRINE [Concomitant]
  4. DEXAMETHASONE [Concomitant]
  5. FENTANYL [Concomitant]
  6. ACETAMINOPHEN\HYDROCODONE [Concomitant]
     Active Substance: ACETAMINOPHEN\HYDROCODONE
  7. LEVETIRACETAM [Concomitant]
  8. LIDOCAINE VISCOUS [Concomitant]
  9. MAGIC MOUTHWASH [Concomitant]
  10. OLANZAPINE [Concomitant]
  11. ONDANSETRON [Concomitant]
  12. POLYETHYLENE [Concomitant]
  13. SUCRALFATE [Concomitant]
  14. TRAZODONE [Concomitant]
  15. TYLENOL [Concomitant]

REACTIONS (2)
  - Disease progression [None]
  - Therapy cessation [None]
